FAERS Safety Report 4854162-2 (Version None)
Quarter: 2005Q4

REPORT INFORMATION
  Report Type: 
  Country: None (occurrence: None)
  Receive Date: 20051125
  Receipt Date: 20050718
  Transmission Date: 20060501
  Serious: Yes (Disabling)
  Sender: FDA-Public Use
  Company Number: US-JNJFOC-20050503236

PATIENT
  Age: 69 Year
  Sex: Male

DRUGS (9)
  1. LEVAQUIN [Suspect]
     Indication: BRONCHITIS
     Dosage: 1 IN 24 HOUR, ORAL
     Route: 048
     Dates: start: 20050421, end: 20050427
  2. PREDNISONE TAB [Concomitant]
  3. DIGOXIN [Concomitant]
  4. PLAVIX [Concomitant]
  5. ANTIDEPRESSANTS [Concomitant]
  6. ASPIRIN [Concomitant]
  7. HCTZ (HYDROCHLOROTHIAZIDE) [Concomitant]
  8. PRINIVIL [Concomitant]
  9. CHOLESTEROL DRUG (CHOLESTEROL - AND TRIGLYCERIDE REDUCERS) [Concomitant]

REACTIONS (1)
  - TENDONITIS [None]
